FAERS Safety Report 17179182 (Version 2)
Quarter: 2020Q1

REPORT INFORMATION
  Report Type: Report from Study
  Country: None (occurrence: US)
  Receive Date: 20191219
  Receipt Date: 20200331
  Transmission Date: 20200409
  Serious: Yes (Hospitalization)
  Sender: FDA-Public Use
  Company Number: US-ABBVIE-19K-163-2982070-00

PATIENT
  Age: 56 Year
  Sex: Female

DRUGS (2)
  1. HUMIRA [Suspect]
     Active Substance: ADALIMUMAB
     Indication: RHEUMATOID ARTHRITIS
     Route: 058
     Dates: start: 20190920, end: 201912
  2. HUMIRA [Suspect]
     Active Substance: ADALIMUMAB
     Route: 058
     Dates: start: 20200118

REACTIONS (25)
  - Pseudomonal sepsis [Recovered/Resolved]
  - Joint swelling [Unknown]
  - Arthralgia [Recovering/Resolving]
  - Pain [Recovered/Resolved]
  - Discomfort [Not Recovered/Not Resolved]
  - Diabetic foot [Recovered/Resolved]
  - Erythema [Recovering/Resolving]
  - Impaired self-care [Not Recovered/Not Resolved]
  - Hypoaesthesia [Recovering/Resolving]
  - Gait disturbance [Recovered/Resolved]
  - Impaired self-care [Recovered/Resolved]
  - Joint swelling [Recovering/Resolving]
  - Dysstasia [Not Recovered/Not Resolved]
  - Musculoskeletal disorder [Unknown]
  - Fatigue [Not Recovered/Not Resolved]
  - Therapeutic product effect delayed [Unknown]
  - Arthralgia [Unknown]
  - Pain [Not Recovered/Not Resolved]
  - Loss of personal independence in daily activities [Recovering/Resolving]
  - Gait disturbance [Not Recovered/Not Resolved]
  - Musculoskeletal stiffness [Recovering/Resolving]
  - Joint stiffness [Not Recovered/Not Resolved]
  - Peripheral swelling [Recovered/Resolved]
  - Bone pain [Recovered/Resolved]
  - Joint warmth [Unknown]

NARRATIVE: CASE EVENT DATE: 2019
